FAERS Safety Report 8427085-X (Version None)
Quarter: 2012Q2

REPORT INFORMATION
  Report Type: 
  Country: None (occurrence: None)
  Receive Date: 20120611
  Receipt Date: 20120601
  Transmission Date: 20120825
  Serious: Yes (Life-Threatening, Hospitalization)
  Sender: FDA-Public Use
  Company Number: JP-SHIRE-ALL1-2012-02445

PATIENT
  Age: 62 Year
  Sex: Female

DRUGS (41)
  1. YOKUKAN-SAN [Concomitant]
     Indication: INSOMNIA
     Dosage: 3 DF, UNKNOWN
     Route: 048
  2. PREDNISOLONE [Concomitant]
     Dosage: 7.5 MG, UNKNOWN
     Route: 048
     Dates: start: 20100505
  3. CANDESARTAN CILEXETIL [Concomitant]
     Dosage: 4 MG, UNKNOWN (EXCEPT DAYS OF HD)
     Route: 048
     Dates: start: 20100915, end: 20111107
  4. LAMISIL                            /00992601/ [Concomitant]
     Indication: ONYCHOMYCOSIS
     Dosage: 1 DF, UNKNOWN
     Route: 048
     Dates: start: 20090701
  5. ATARAX [Concomitant]
     Indication: PRURITUS
     Dosage: 1 DF, UNKNOWN
     Route: 048
  6. NESINA [Concomitant]
     Indication: PRODUCT USED FOR UNKNOWN INDICATION
     Dosage: 12.5 MG, UNKNOWN
     Route: 048
     Dates: start: 20110614
  7. MIGLITOL [Concomitant]
     Indication: PRODUCT USED FOR UNKNOWN INDICATION
     Dosage: 100 MG, UNKNOWN
     Route: 048
     Dates: start: 20120418
  8. POLARAMINE [Concomitant]
     Dosage: 4 MG, UNKNOWN
     Route: 048
  9. CALCIUM CARBONATE [Concomitant]
     Indication: PRODUCT USED FOR UNKNOWN INDICATION
     Dosage: 1500 MG, UNKNOWN
     Route: 048
     Dates: start: 20070622
  10. LIDOCAINE [Concomitant]
     Indication: PRODUCT USED FOR UNKNOWN INDICATION
     Dosage: 4 DF, 1X/WEEK (4 SHEETS)
     Route: 062
     Dates: start: 20080128
  11. CANDESARTAN CILEXETIL [Concomitant]
     Indication: PRODUCT USED FOR UNKNOWN INDICATION
     Dosage: 2 MG, UNKNOWN
     Route: 048
     Dates: start: 20061215, end: 20080521
  12. STROCAIN                           /00130301/ [Concomitant]
     Indication: ABDOMINAL PAIN UPPER
     Dosage: 10 DF, 1X/WEEK
     Route: 048
     Dates: start: 20061030
  13. PREDNISOLONE [Concomitant]
     Indication: PRODUCT USED FOR UNKNOWN INDICATION
     Dosage: 10 MG, UNKNOWN
     Route: 048
     Dates: start: 20100428
  14. NESINA [Concomitant]
     Dosage: 6.25 MG, UNKNOWN
     Route: 048
     Dates: start: 20110620
  15. FOLIAMIN [Concomitant]
     Indication: PRODUCT USED FOR UNKNOWN INDICATION
     Dosage: 2 DF, 1X/WEEK
     Route: 048
     Dates: start: 20070413, end: 20070420
  16. LENDORMIN [Concomitant]
     Dosage: 0.5 MG, UNKNOWN
     Route: 048
     Dates: start: 20061211
  17. CALCIUM CARBONATE [Concomitant]
     Dosage: 1500 MG, UNKNOWN
     Route: 048
     Dates: start: 20071214
  18. EQUA [Concomitant]
     Dosage: 50 MG, UNKNOWN
     Route: 048
     Dates: start: 20110223, end: 20110614
  19. RHUBARB DRY EXTRACT [Concomitant]
     Indication: CONSTIPATION
     Dosage: 1 G, UNKNOWN
     Route: 048
     Dates: start: 20071224
  20. LOXONIN [Concomitant]
     Indication: ABDOMINAL PAIN UPPER
     Dosage: 10 DF, 1X/WEEK
     Route: 048
     Dates: start: 20070330
  21. POLARAMINE [Concomitant]
     Indication: PRODUCT USED FOR UNKNOWN INDICATION
     Dosage: 4 MG, UNKNOWN
     Route: 048
     Dates: start: 20061002
  22. CALCIUM CARBONATE [Concomitant]
     Dosage: 1500 MG, UNKNOWN
     Route: 048
     Dates: start: 20100514, end: 20101008
  23. FERROMIA                           /00023516/ [Concomitant]
     Dosage: 1 DF, UNKNOWN
     Route: 048
     Dates: start: 20100514, end: 20110610
  24. FOSRENOL [Suspect]
     Indication: HYPERPHOSPHATAEMIA
     Dosage: 500 MG, UNKNOWN
     Route: 048
     Dates: start: 20110225, end: 20120511
  25. REMITCH [Concomitant]
     Indication: PRODUCT USED FOR UNKNOWN INDICATION
     Dosage: 1 DF, UNKNOWN
     Route: 048
     Dates: start: 20100308
  26. TICLOPIDINE HCL [Concomitant]
     Indication: PRODUCT USED FOR UNKNOWN INDICATION
     Dosage: 2 DF, UNKNOWN
     Route: 048
  27. CALCIUM CARBONATE [Concomitant]
     Dosage: UNK, UNKNOWN
     Route: 048
     Dates: start: 20120118
  28. LIDOCAINE [Concomitant]
     Dosage: 6 DF, 1X/WEEK (6 SHEETS)
     Route: 062
     Dates: start: 20120116
  29. FERROMIA                           /00023516/ [Concomitant]
     Indication: PRODUCT USED FOR UNKNOWN INDICATION
     Dosage: 1 DF, UNKNOWN
     Route: 048
     Dates: start: 20061013
  30. EQUA [Concomitant]
     Dosage: 100 MG, UNKNOWN
     Route: 048
     Dates: start: 20100904
  31. LANSOPRAZOLE [Concomitant]
     Indication: ABDOMINAL PAIN UPPER
     Dosage: 15 MG, UNKNOWN
     Route: 048
     Dates: start: 20080204
  32. ACONITE [Concomitant]
     Indication: ARTHRALGIA
     Dosage: 1 G, UNKNOWN
     Route: 048
     Dates: start: 20070910
  33. FOLIAMIN [Concomitant]
     Dosage: 1 DF, 1X/WEEK
     Route: 048
     Dates: start: 20090415
  34. FERROMIA                           /00023516/ [Concomitant]
     Dosage: 2 DF, UNKNOWN
     Route: 048
     Dates: start: 20070518, end: 20090410
  35. PREDNISOLONE [Concomitant]
     Dosage: 5 MG, UNKNOWN
     Route: 048
     Dates: start: 20100526
  36. PREDNISOLONE [Concomitant]
     Dosage: 2.5 MG, UNKNOWN
     Route: 048
     Dates: start: 20100707
  37. FOLIAMIN [Concomitant]
     Dosage: 3 DF, 1X/WEEK
     Route: 048
     Dates: start: 20080521
  38. EQUA [Concomitant]
     Indication: PRODUCT USED FOR UNKNOWN INDICATION
     Dosage: 50 MG, UNKNOWN
     Route: 048
     Dates: start: 20100719
  39. EVISTA [Concomitant]
     Indication: PRODUCT USED FOR UNKNOWN INDICATION
     Dosage: 1 DF, UNKNOWN
     Route: 048
     Dates: start: 20070413
  40. LENDORMIN [Concomitant]
     Indication: PRODUCT USED FOR UNKNOWN INDICATION
     Dosage: 0.5 MG, UNKNOWN
     Route: 048
     Dates: start: 20061204
  41. CALCIUM CARBONATE [Concomitant]
     Dosage: 3000 MG, UNKNOWN
     Route: 048
     Dates: start: 20080820

REACTIONS (3)
  - WRONG TECHNIQUE IN DRUG USAGE PROCESS [None]
  - ACUTE ABDOMEN [None]
  - MEDICATION RESIDUE [None]
